FAERS Safety Report 5122298-7 (Version None)
Quarter: 2006Q4

REPORT INFORMATION
  Report Type: 
  Country: None (occurrence: None)
  Receive Date: 20061003
  Receipt Date: 20060921
  Transmission Date: 20070319
  Serious: Yes (Other)
  Sender: FDA-Public Use
  Company Number: 2006US-03872

PATIENT
  Age: 48 Year
  Sex: Female

DRUGS (1)
  1. ISOTRETINOIN [Suspect]
     Dosage: 40 MG, BID,

REACTIONS (3)
  - CONVULSION [None]
  - DISORIENTATION [None]
  - DIZZINESS [None]
